FAERS Safety Report 4744484-8 (Version None)
Quarter: 2005Q3

REPORT INFORMATION
  Report Type: 
  Country: None (occurrence: None)
  Receive Date: 20050811
  Receipt Date: 20050811
  Transmission Date: 20060218
  Serious: Yes (Hospitalization)
  Sender: FDA-Public Use
  Company Number: None

PATIENT
  Age: 36 Year
  Sex: Female
  Weight: 63 kg

DRUGS (7)
  1. SULFAMETHOXAZOLE + TRIMETHOPRIM [Suspect]
     Indication: INFECTION PROPHYLAXIS
     Dosage: ONE PO Q DAY
     Route: 048
     Dates: start: 20050724, end: 20050726
  2. LINEZOLID 600 MG IV [Suspect]
     Indication: CELLULITIS
     Dosage: 600 MG IV ONCE
     Route: 042
     Dates: start: 20050722
  3. VANCOMYCIN [Concomitant]
  4. CLINDAMYCIN [Concomitant]
  5. ZITHROMAX [Concomitant]
  6. CEFTRIAXONE [Concomitant]
  7. METRONIDAZOLE [Concomitant]

REACTIONS (4)
  - MYOGLOBIN BLOOD INCREASED [None]
  - NEPHRITIS INTERSTITIAL [None]
  - RENAL FAILURE ACUTE [None]
  - RHABDOMYOLYSIS [None]
